FAERS Safety Report 10478898 (Version 1)
Quarter: 2014Q3

REPORT INFORMATION
  Report Type: Spontaneous
  Country: IR (occurrence: IR)
  Receive Date: 20140926
  Receipt Date: 20140926
  Transmission Date: 20150326
  Serious: Yes (Life-Threatening, Other)
  Sender: FDA-Public Use
  Company Number: IR-ROXANE LABORATORIES, INC.-2014-RO-01445RO

PATIENT
  Age: 6 Year
  Sex: Male

DRUGS (1)
  1. METHADONE [Suspect]
     Active Substance: METHADONE HYDROCHLORIDE
     Indication: PRODUCT USED FOR UNKNOWN INDICATION
     Route: 065

REACTIONS (3)
  - Respiratory arrest [Recovered/Resolved]
  - Respiratory acidosis [Recovered/Resolved]
  - Toxicity to various agents [Recovered/Resolved]
